FAERS Safety Report 17987264 (Version 2)
Quarter: 2020Q3

REPORT INFORMATION
  Report Type: Spontaneous
  Country: US (occurrence: US)
  Receive Date: 20200707
  Receipt Date: 20200709
  Transmission Date: 20201103
  Serious: No
  Sender: FDA-Public Use
  Company Number: US-JNJFOC-20200637457

PATIENT
  Age: 30 Year
  Sex: Male

DRUGS (1)
  1. MENS ROGAINE EXTRA STRENGTH [Suspect]
     Active Substance: MINOXIDIL
     Indication: ALOPECIA
     Route: 061

REACTIONS (5)
  - Therapeutic response unexpected [Unknown]
  - Product use in unapproved indication [Unknown]
  - Product odour abnormal [Unknown]
  - Product formulation issue [Unknown]
  - Product administered at inappropriate site [Unknown]
